FAERS Safety Report 7929839-2 (Version None)
Quarter: 2011Q4

REPORT INFORMATION
  Report Type: 
  Country: None (occurrence: None)
  Receive Date: 20111121
  Receipt Date: 20111116
  Transmission Date: 20120403
  Serious: Yes (Disabling)
  Sender: FDA-Public Use
  Company Number: US-PFIZER INC-2011146502

PATIENT
  Sex: Female

DRUGS (5)
  1. PAROXETINE [Concomitant]
     Indication: DEPRESSION
  2. CHANTIX [Suspect]
     Indication: SMOKING CESSATION THERAPY
     Dosage: STARTING MONTH PACK AND CONTINUING MONTH PACK
     Route: 048
     Dates: start: 20071029, end: 20080101
  3. ACIPHEX [Concomitant]
     Indication: GASTROOESOPHAGEAL REFLUX DISEASE
     Dosage: UNK
     Dates: start: 20060101
  4. ALBUTEROL [Concomitant]
     Indication: BRONCHITIS CHRONIC
     Dosage: UNK
     Dates: start: 19960101, end: 20090101
  5. PAROXETINE [Concomitant]
     Indication: ANXIETY
     Dosage: UNK
     Dates: start: 20071029

REACTIONS (3)
  - ANXIETY [None]
  - NIGHTMARE [None]
  - DEPRESSION [None]
